FAERS Safety Report 25938603 (Version 1)
Quarter: 2025Q4

REPORT INFORMATION
  Report Type: Spontaneous
  Country: CA (occurrence: CA)
  Receive Date: 20251019
  Receipt Date: 20251019
  Transmission Date: 20260118
  Serious: Yes (Other)
  Sender: JOHNSON AND JOHNSON
  Company Number: CA-JNJFOC-20251022356

PATIENT
  Age: 47 Year
  Sex: Male

DRUGS (1)
  1. USTEKINUMAB [Suspect]
     Active Substance: USTEKINUMAB
     Indication: Colitis ulcerative
     Route: 040

REACTIONS (3)
  - Insomnia [Unknown]
  - Arthralgia [Unknown]
  - Intentional product use issue [Unknown]
